FAERS Safety Report 24183008 (Version 1)
Quarter: 2024Q3

REPORT INFORMATION
  Report Type: Spontaneous
  Country: GB (occurrence: GB)
  Receive Date: 20240807
  Receipt Date: 20240807
  Transmission Date: 20241017
  Serious: Yes (Other)
  Sender: AUROBINDO
  Company Number: GB-MHRA-31198011

PATIENT
  Age: 74 Year
  Sex: Female

DRUGS (1)
  1. NITROFURANTOIN [Suspect]
     Active Substance: NITROFURANTOIN
     Indication: Urinary tract infection
     Dosage: 1 DOSAGE FORM
     Route: 065
     Dates: start: 20240522, end: 20240526

REACTIONS (2)
  - Glaucoma [Unknown]
  - Eye pain [Unknown]
